FAERS Safety Report 22845572 (Version 10)
Quarter: 2025Q1

REPORT INFORMATION
  Report Type: Report from Study
  Country: US (occurrence: US)
  Receive Date: 20230821
  Receipt Date: 20250317
  Transmission Date: 20250408
  Serious: Yes (Hospitalization)
  Sender: TAKEDA
  Company Number: US-TAKEDA-2023TUS079610

PATIENT
  Sex: Female

DRUGS (20)
  1. PONATINIB [Suspect]
     Active Substance: PONATINIB
     Indication: Acute lymphocytic leukaemia
     Dosage: 45 MILLIGRAM, QD
  2. PONATINIB [Suspect]
     Active Substance: PONATINIB
     Dosage: 45 MILLIGRAM, QD
  3. PONATINIB [Suspect]
     Active Substance: PONATINIB
     Dosage: 30 MILLIGRAM, QD
  4. PONATINIB [Suspect]
     Active Substance: PONATINIB
     Dosage: 30 MILLIGRAM, QD
  5. PONATINIB [Suspect]
     Active Substance: PONATINIB
     Dosage: 30 MILLIGRAM, QD
  6. VINCRISTINE [Suspect]
     Active Substance: VINCRISTINE
     Indication: Acute lymphocytic leukaemia
  7. DEXAMETHASONE [Suspect]
     Active Substance: DEXAMETHASONE
     Indication: Acute lymphocytic leukaemia
  8. CYCLOPHOSPHAMIDE [Suspect]
     Active Substance: CYCLOPHOSPHAMIDE
     Indication: Acute lymphocytic leukaemia
  9. ADRIAMYCIN [Suspect]
     Active Substance: DOXORUBICIN HYDROCHLORIDE
     Indication: Acute lymphocytic leukaemia
  10. HYDROXYUREA [Concomitant]
     Active Substance: HYDROXYUREA
  11. FOLIC ACID [Concomitant]
     Active Substance: FOLIC ACID
  12. ACYCLOVIR [Concomitant]
     Active Substance: ACYCLOVIR
  13. ALLOPURINOL [Concomitant]
     Active Substance: ALLOPURINOL
  14. LEVOFLOXACIN [Concomitant]
     Active Substance: LEVOFLOXACIN
  15. ZOFRAN [Concomitant]
     Active Substance: ONDANSETRON HYDROCHLORIDE
  16. OMEPRAZOLE [Concomitant]
     Active Substance: OMEPRAZOLE
  17. POSACONAZOLE [Concomitant]
     Active Substance: POSACONAZOLE
  18. VITAMIN A AND D [Concomitant]
     Active Substance: LANOLIN\PETROLATUM
  19. MYRBETRIQ [Concomitant]
     Active Substance: MIRABEGRON
  20. HYDROCHLOROTHIAZIDE [Concomitant]
     Active Substance: HYDROCHLOROTHIAZIDE

REACTIONS (18)
  - Skin fissures [Unknown]
  - White blood cell count increased [Unknown]
  - Red blood cell count decreased [Unknown]
  - Haemoglobin decreased [Unknown]
  - Product dose omission issue [Unknown]
  - Hypoacusis [Unknown]
  - Feeling abnormal [Unknown]
  - Product use complaint [Unknown]
  - Nausea [Unknown]
  - Hypoaesthesia [Unknown]
  - Dry skin [Unknown]
  - Dehydration [Unknown]
  - Muscular weakness [Unknown]
  - Skin exfoliation [Unknown]
  - Dysphagia [Unknown]
  - Oropharyngeal pain [Unknown]
  - Seasonal allergy [Unknown]
  - Sinusitis [Unknown]
